FAERS Safety Report 8329330 (Version 4)
Quarter: 2013Q1

REPORT INFORMATION
  Report Type: Spontaneous
  Country: US (occurrence: None)
  Receive Date: 20111230
  Receipt Date: 20130128
  Transmission Date: 20140127
  Serious: Yes (Hospitalization, Other)
  Sender: FDA-Public Use
  Company Number: JPI-P-018689

PATIENT
  Age: 43 Year
  Sex: Female
  Weight: 89.81 kg

DRUGS (20)
  1. XYREM [Suspect]
     Indication: CATAPLEXY
     Route: 048
     Dates: start: 20110314, end: 2011
  2. ARMODAFINIL [Suspect]
     Indication: PRODUCT USED FOR UNKNOWN INDICATION
     Dosage: 250 MG (250 MG, 1 IN 1 D), ORAL, 250 MG (250 MG, 1 IN 1 D), ORAL
     Route: 048
  3. UNSPECIFIED SEIZURE MEDICATIONS [Concomitant]
     Indication: PRODUCT USED FOR UNKNOWN INDICATION
     Dosage: 100 MG (100 MG, 1 IN 1 D), ORAL
     Route: 048
     Dates: start: 20110725, end: 20111128
  4. CALCIUM + VITAMIN D [Concomitant]
  5. ZONISAMIDE [Suspect]
  6. MEDROXYPROGESTERONE [Concomitant]
  7. DOCUSATE [Concomitant]
  8. FISH OIL [Concomitant]
  9. HYDROCHLOROTHIAZIDE [Concomitant]
  10. ACETAMINOPHEN [Concomitant]
  11. VITAMIN B COMPLEX [Concomitant]
  12. VITAMIN B-12 [Concomitant]
  13. IBUPROFEN [Concomitant]
  14. MULTI-VITAMIN [Concomitant]
  15. GABAPENTIN [Concomitant]
  16. ATENOLOL [Concomitant]
  17. SIMVASTATIN [Concomitant]
  18. VARENICLINE TARTRATE [Concomitant]
  19. IMIPENEM [Concomitant]
  20. LISINOPRIL W/HYDROCHLOROTHIAZIDE [Concomitant]

REACTIONS (30)
  - Weight decreased [None]
  - Confusional state [None]
  - Memory impairment [None]
  - Mental status changes [None]
  - Speech disorder [None]
  - Staring [None]
  - Gait disturbance [None]
  - Abnormal behaviour [None]
  - Flat affect [None]
  - Asthenia [None]
  - Encephalopathy [None]
  - Abscess [None]
  - Sinus tachycardia [None]
  - Left atrial dilatation [None]
  - White blood cell count increased [None]
  - Hyponatraemia [None]
  - Scoliosis [None]
  - Kyphoscoliosis [None]
  - Social problem [None]
  - Fall [None]
  - Treatment noncompliance [None]
  - Concussion [None]
  - Foot fracture [None]
  - Foot fracture [None]
  - Metabolic encephalopathy [None]
  - Toxic encephalopathy [None]
  - Cerebrovascular disorder [None]
  - Infection [None]
  - Protein total decreased [None]
  - Aspartate aminotransferase decreased [None]
